FAERS Safety Report 16858364 (Version 1)
Quarter: 2019Q3

REPORT INFORMATION
  Report Type: Report from Study
  Country: CN (occurrence: CN)
  Receive Date: 20190926
  Receipt Date: 20190926
  Transmission Date: 20191005
  Serious: Yes (Death, Hospitalization)
  Sender: FDA-Public Use
  Company Number: PHHO2016CN018604

PATIENT
  Age: 69 Year
  Sex: Male
  Weight: 80.6 kg

DRUGS (36)
  1. PLACEBO [Suspect]
     Active Substance: UNSPECIFIED INGREDIENT
     Dosage: UNK
     Route: 048
     Dates: start: 20171116, end: 20180302
  2. ISOSORBIDE. [Concomitant]
     Active Substance: ISOSORBIDE
     Indication: CORONARY ARTERY DISEASE
     Dosage: 40 MG, QD
     Route: 048
     Dates: start: 20161014, end: 20161215
  3. METOPROLOL SUCCINATE. [Concomitant]
     Active Substance: METOPROLOL SUCCINATE
     Indication: CARDIAC FAILURE
     Dosage: 47.5 MG, QD
     Route: 048
     Dates: start: 20180321
  4. PLACEBO [Suspect]
     Active Substance: UNSPECIFIED INGREDIENT
     Dosage: UNK
     Route: 048
     Dates: start: 20160803, end: 20161215
  5. PLACEBO [Suspect]
     Active Substance: UNSPECIFIED INGREDIENT
     Dosage: UNK
     Route: 048
     Dates: start: 20171116, end: 20180302
  6. BISOPROLOL FUMARATE. [Concomitant]
     Active Substance: BISOPROLOL FUMARATE
     Indication: CARDIAC FAILURE
     Dosage: 7.5 MG, QD
     Route: 048
     Dates: start: 20160509, end: 20171123
  7. ACARBOSE. [Concomitant]
     Active Substance: ACARBOSE
     Indication: DIABETES MELLITUS
     Dosage: 100 MG, TID
     Route: 048
     Dates: start: 2006, end: 20161215
  8. INSULIN ASPART [Concomitant]
     Active Substance: INSULIN ASPART
     Indication: DIABETES MELLITUS
     Dosage: 35 U, (8:00 15U,12:00 10U,20:00 10U,H)
     Route: 065
     Dates: start: 2006, end: 20161215
  9. SODIUM BICARBONATE. [Concomitant]
     Active Substance: SODIUM BICARBONATE
     Indication: GOUT
     Dosage: 0.5 MG, TID
     Route: 048
     Dates: start: 20171020
  10. ISOSORBIDE DINITRATE. [Concomitant]
     Active Substance: ISOSORBIDE DINITRATE
     Dosage: 20 ML, QD, IBN
     Route: 065
     Dates: start: 20180307, end: 20180307
  11. VALSARTAN. [Suspect]
     Active Substance: VALSARTAN
     Dosage: 160 MG, BID
     Route: 048
     Dates: start: 20180403, end: 20180605
  12. FUROSEMIDE. [Concomitant]
     Active Substance: FUROSEMIDE
     Indication: CARDIAC FAILURE
     Dosage: 20 MG, BID
     Route: 048
     Dates: start: 20160509, end: 20171123
  13. WARFARIN [Concomitant]
     Active Substance: WARFARIN
     Indication: RHEUMATIC HEART DISEASE
     Dosage: 3.75 MG, QOD (3.125 MG, QOD)
     Route: 048
     Dates: start: 2008, end: 20171123
  14. ALPROSTADIL. [Concomitant]
     Active Substance: ALPROSTADIL
     Indication: VASODILATATION
     Dosage: 2 ML, QD
     Route: 042
     Dates: start: 20180328, end: 20180329
  15. ALPROSTADIL. [Concomitant]
     Active Substance: ALPROSTADIL
     Dosage: 2 ML, BID
     Route: 042
     Dates: start: 20180330, end: 20180402
  16. NICORANDIL [Concomitant]
     Active Substance: NICORANDIL
     Indication: CORONARY ARTERY DISEASE
     Dosage: 5 MG, TID
     Route: 048
     Dates: start: 20170208
  17. LOXOPROFEN SODIUM [Concomitant]
     Active Substance: LOXOPROFEN SODIUM
     Indication: GOUT
     Dosage: 60 MG, BID
     Route: 048
     Dates: start: 20180321, end: 20180402
  18. MILRINONE [Concomitant]
     Active Substance: MILRINONE
     Dosage: 10 MG, QD (ROA: BIN)
     Route: 065
     Dates: start: 20180321, end: 20180321
  19. AMLODIPINE BENZENESULFONATE [Concomitant]
     Indication: HYPERTENSION
     Dosage: 47.5 MG, QD
     Route: 048
     Dates: start: 20180321, end: 20180606
  20. CLOPIDOGREL [Concomitant]
     Active Substance: CLOPIDOGREL BISULFATE
     Indication: CORONARY ARTERY DISEASE
     Dosage: 75 G, QD
     Route: 048
     Dates: start: 20180304
  21. ATORVASTATIN [Concomitant]
     Active Substance: ATORVASTATIN
     Indication: CORONARY ARTERY DISEASE
     Dosage: 20 MG, QD
     Route: 048
     Dates: start: 20160509, end: 20171123
  22. RHUBARB+SOD.BICARB [Concomitant]
     Indication: LAXATIVE SUPPORTIVE CARE
     Dosage: 0.9 G, TID
     Route: 048
     Dates: start: 20180310, end: 20180323
  23. ISOSORBIDE DINITRATE. [Concomitant]
     Active Substance: ISOSORBIDE DINITRATE
     Indication: CARDIOVASCULAR DISORDER
     Dosage: 20 ML, QD
     Route: 042
     Dates: start: 20180304
  24. VALSARTAN. [Suspect]
     Active Substance: VALSARTAN
     Indication: CARDIAC FAILURE
     Dosage: 160 MG, BID
     Route: 048
     Dates: start: 20160803, end: 20161215
  25. TRIMETAZIDINE DIHYDROCHLORIDE [Concomitant]
     Active Substance: TRIMETAZIDINE DIHYDROCHLORIDE
     Indication: CORONARY ARTERY DISEASE
     Dosage: 20 MG, TID
     Route: 048
     Dates: start: 2013, end: 20171123
  26. ISOSORBIDE DINITRATE. [Concomitant]
     Active Substance: ISOSORBIDE DINITRATE
     Dosage: 20 ML, QD AND 40 ML, IBN, BID
     Route: 042
     Dates: start: 20180309, end: 20180309
  27. ISOSORBIDE DINITRATE. [Concomitant]
     Active Substance: ISOSORBIDE DINITRATE
     Dosage: 40 ML, BID (ROA: IBN)
     Route: 065
     Dates: start: 20180311, end: 20180311
  28. VALSARTAN. [Suspect]
     Active Substance: VALSARTAN
     Dosage: 160 MG, BID
     Route: 048
     Dates: start: 20171116, end: 20180302
  29. SPIRONOLACTONE. [Concomitant]
     Active Substance: SPIRONOLACTONE
     Indication: CARDIAC FAILURE
     Dosage: 20 MG, QD
     Route: 048
     Dates: start: 20160509
  30. AMLODIPINE BESYLATE. [Concomitant]
     Active Substance: AMLODIPINE BESYLATE
     Indication: BLOOD PRESSURE MANAGEMENT
     Dosage: 5 MG, QD
     Route: 048
     Dates: start: 20180307
  31. METOPROLOL TARTRATE. [Concomitant]
     Active Substance: METOPROLOL TARTRATE
     Indication: CARDIAC FAILURE
     Dosage: 12.5 MG, BID
     Route: 048
     Dates: start: 20180316, end: 20180320
  32. MILRINONE [Concomitant]
     Active Substance: MILRINONE
     Indication: PROPHYLAXIS
     Dosage: 10 MG, TID (ROA: BIN)
     Route: 065
     Dates: start: 20180319, end: 20180320
  33. INSULIN DETEMIR [Concomitant]
     Active Substance: INSULIN DETEMIR
     Indication: DIABETES MELLITUS
     Dosage: 20 U, QD, H
     Route: 065
     Dates: start: 201503, end: 20161215
  34. ISOSORBIDE DINITRATE. [Concomitant]
     Active Substance: ISOSORBIDE DINITRATE
     Dosage: 50 ML, BID, ROA: IBN
     Route: 065
     Dates: start: 20180308, end: 20180308
  35. ISOSORBIDE DINITRATE. [Concomitant]
     Active Substance: ISOSORBIDE DINITRATE
     Dosage: 40 ML, TID (ROA: IBN)
     Route: 065
     Dates: start: 20180310, end: 20180310
  36. MILRINONE [Concomitant]
     Active Substance: MILRINONE
     Dosage: 10 MG, QD
     Route: 042
     Dates: start: 20180322, end: 20180326

REACTIONS (5)
  - Acute myocardial infarction [Fatal]
  - Myocardial infarction [Fatal]
  - Cardiac failure [Recovered/Resolved with Sequelae]
  - Acute myocardial infarction [Recovered/Resolved with Sequelae]
  - Acute myocardial infarction [Recovered/Resolved with Sequelae]

NARRATIVE: CASE EVENT DATE: 20161208
